FAERS Safety Report 6823790-7 (Version None)
Quarter: 2010Q3

REPORT INFORMATION
  Report Type: 
  Country: None (occurrence: None)
  Receive Date: 20100708
  Receipt Date: 20060907
  Transmission Date: 20110219
  Serious: No
  Sender: FDA-Public Use
  Company Number: US-PFIZER INC-2006110062

PATIENT
  Sex: Male
  Weight: 68.04 kg

DRUGS (10)
  1. VARENICLINE [Suspect]
     Indication: EX-TOBACCO USER
  2. HYDROCHLOROTHIAZIDE [Concomitant]
  3. METOPROLOL [Concomitant]
  4. PLAVIX [Concomitant]
  5. FORMOTEROL W/BUDESONIDE [Concomitant]
  6. OTHER RESPIRATORY SYSTEM PRODUCTS [Concomitant]
  7. ATACAND [Concomitant]
  8. TEGRETOL [Concomitant]
  9. LIPITOR [Concomitant]
  10. FOLTX [Concomitant]

REACTIONS (1)
  - SOMNOLENCE [None]
